FAERS Safety Report 5528768-1 (Version None)
Quarter: 2007Q4

REPORT INFORMATION
  Report Type: 
  Country: None (occurrence: None)
  Receive Date: 20071129
  Receipt Date: 20071120
  Transmission Date: 20080405
  Serious: Yes (Hospitalization)
  Sender: FDA-Public Use
  Company Number: GB-NOVOPROD-266063

PATIENT
  Sex: Male
  Weight: 86 kg

DRUGS (5)
  1. NOVOLOG MIX 70/30 [Suspect]
     Indication: INSULIN-REQUIRING TYPE II DIABETES MELLITUS
     Dosage: 14 IU, QD
     Route: 058
     Dates: start: 20060221
  2. GLICLAZIDE [Concomitant]
     Dosage: 90 MG, QD
     Route: 048
     Dates: start: 20060101
  3. METFORMIN HCL [Concomitant]
     Dosage: 3000 MG, QD
     Route: 048
     Dates: start: 19890101
  4. ASPIRINE                           /00002701/ [Concomitant]
     Dosage: 75 MG, QD
     Route: 048
     Dates: start: 19890101
  5. LANSOPRAZOLE [Concomitant]
     Dosage: 30 MG, QD
     Route: 048

REACTIONS (3)
  - CELLULITIS [None]
  - FALL [None]
  - LOWER LIMB FRACTURE [None]
